FAERS Safety Report 8961720 (Version 1)
Quarter: 2012Q4

REPORT INFORMATION
  Report Type: 
  Country: DE (occurrence: DE)
  Receive Date: 20121213
  Receipt Date: 20121213
  Transmission Date: 20130627
  Serious: Yes (Other)
  Sender: FDA-Public Use
  Company Number: DE-JNJFOC-20121108685

PATIENT
  Age: 86 Year
  Sex: Female

DRUGS (14)
  1. XARELTO [Suspect]
     Indication: CEREBROVASCULAR ACCIDENT PROPHYLAXIS
     Route: 048
     Dates: start: 20120802, end: 20120929
  2. XARELTO [Suspect]
     Indication: ATRIAL FIBRILLATION
     Route: 048
     Dates: start: 20120802, end: 20120929
  3. METFORMIN [Concomitant]
     Route: 065
  4. AMLODIPINE [Concomitant]
     Route: 065
  5. ZOLPIDEM [Concomitant]
     Route: 065
  6. PROMETHAZIN [Concomitant]
     Route: 065
  7. NOVAMINSULFON [Concomitant]
     Route: 065
  8. ENALAPRIL [Concomitant]
     Route: 065
  9. BELOC ZOK [Concomitant]
     Route: 065
  10. PANTOZOL [Concomitant]
     Route: 065
  11. IBEROGAST [Concomitant]
     Route: 065
  12. BETAHISTIN [Concomitant]
     Route: 065
  13. ACTRAPHANE [Concomitant]
     Route: 065
  14. FUROSEMIDE [Concomitant]
     Route: 065

REACTIONS (3)
  - Transaminases increased [Recovering/Resolving]
  - Inappropriate schedule of drug administration [Recovered/Resolved]
  - Overdose [Unknown]
